FAERS Safety Report 9518115 (Version 1)
Quarter: 2013Q1

REPORT INFORMATION
  Report Type: Spontaneous
  Country: US (occurrence: None)
  Receive Date: 20130305
  Receipt Date: 20130305
  Transmission Date: 20140127
  Serious: Yes (Other)
  Sender: FDA-Public Use
  Company Number: 163-21880-12022066

PATIENT
  Age: 83 Year
  Sex: Male

DRUGS (3)
  1. REVLIMID [Suspect]
     Indication: PLASMA CELL MYELOMA
     Dosage: 10 MG, 3 WEEKS ON, THEN 1 WEEK OF, PO
     Route: 048
     Dates: start: 20110923
  2. OPIUM (OPIUM ALKALOIDS AND DERIVATIVES) (UNKNOWN) [Concomitant]
  3. PROCRIT [Concomitant]

REACTIONS (3)
  - Diarrhoea [None]
  - Laboratory test abnormal [None]
  - Decreased appetite [None]
